FAERS Safety Report 20069711 (Version 1)
Quarter: 2021Q4

REPORT INFORMATION
  Report Type: Spontaneous
  Country: US (occurrence: US)
  Receive Date: 20211115
  Receipt Date: 20211115
  Transmission Date: 20220303
  Serious: No
  Sender: FDA-Public Use
  Company Number: US-OptiNose US, Inc-2021OPT000162

PATIENT
  Sex: Female

DRUGS (2)
  1. XHANCE [Suspect]
     Active Substance: FLUTICASONE PROPIONATE
     Indication: Sinus headache
     Route: 045
     Dates: start: 20210510
  2. XHANCE [Suspect]
     Active Substance: FLUTICASONE PROPIONATE
     Route: 045

REACTIONS (3)
  - Malaise [Unknown]
  - Headache [Unknown]
  - Product use in unapproved indication [Unknown]

NARRATIVE: CASE EVENT DATE: 20210510
